FAERS Safety Report 5820858-9 (Version None)
Quarter: 2008Q3

REPORT INFORMATION
  Report Type: 
  Country: None (occurrence: None)
  Receive Date: 20080724
  Receipt Date: 20080714
  Transmission Date: 20090109
  Serious: No
  Sender: FDA-Public Use
  Company Number: US-BAYER-200812883BCC

PATIENT
  Age: 76 Year
  Sex: Female
  Weight: 56 kg

DRUGS (5)
  1. ALEVE (CAPLET) [Suspect]
     Indication: ARTHRALGIA
     Dosage: TOTAL DAILY DOSE: 220 MG  UNIT DOSE: 220 MG
     Route: 048
  2. LISINOPRIL [Concomitant]
  3. FOSAMAX [Concomitant]
  4. MULTI-VITAMIN [Concomitant]
  5. CALCIUM [Concomitant]

REACTIONS (1)
  - BLOOD PRESSURE INCREASED [None]
